FAERS Safety Report 6617528-6 (Version None)
Quarter: 2010Q1

REPORT INFORMATION
  Report Type: 
  Country: None (occurrence: None)
  Receive Date: 20100302
  Receipt Date: 20100216
  Transmission Date: 20100710
  Serious: Yes (Hospitalization)
  Sender: FDA-Public Use
  Company Number: 20100062

PATIENT
  Age: 1 Hour
  Sex: Male

DRUGS (2)
  1. EPINEPHRINE [Suspect]
     Indication: HYPOTENSION
     Dosage: 100 UG, 300 UG, 600 UG, Q2-3 MIN INTRAVENOUS
     Route: 042
  2. BENZYLPENICILLIN [Concomitant]

REACTIONS (14)
  - APGAR SCORE LOW [None]
  - BRADYCARDIA NEONATAL [None]
  - CAESAREAN SECTION [None]
  - CEREBRAL ISCHAEMIA [None]
  - CONVULSION NEONATAL [None]
  - DEVELOPMENTAL DELAY [None]
  - DYSPHAGIA [None]
  - FOETAL DISTRESS SYNDROME [None]
  - HYPOPNOEA [None]
  - HYPOTONIA NEONATAL [None]
  - HYPOXIC ENCEPHALOPATHY [None]
  - MATERNAL DRUGS AFFECTING FOETUS [None]
  - NEUROLOGICAL EXAMINATION ABNORMAL [None]
  - POOR SUCKING REFLEX [None]
